FAERS Safety Report 6376587-9 (Version None)
Quarter: 2009Q3

REPORT INFORMATION
  Report Type: 
  Country: None (occurrence: None)
  Receive Date: 20090925
  Receipt Date: 20090406
  Transmission Date: 20100115
  Serious: Yes (Hospitalization)
  Sender: FDA-Public Use
  Company Number: GB-PFIZER INC-2009194317

PATIENT
  Age: 67 Year

DRUGS (5)
  1. BLINDED *MIRTAZAPINE [Suspect]
     Indication: DEPRESSION
     Dosage: UNK
     Dates: start: 20090125
  2. BLINDED *NO SUBJECT DRUG [Suspect]
     Indication: DEPRESSION
     Dosage: UNK
     Dates: start: 20090125
  3. BLINDED *PLACEBO [Suspect]
     Indication: DEPRESSION
     Dosage: UNK
     Dates: start: 20090125
  4. BLINDED MIRTAZAPINE [Suspect]
     Dosage: UNK
     Dates: start: 20090125
  5. BLINDED SERTRALINE HCL [Suspect]
     Indication: DEPRESSION
     Dosage: UNK
     Dates: start: 20090125

REACTIONS (1)
  - CEREBROVASCULAR ACCIDENT [None]
